FAERS Safety Report 5115675-1 (Version None)
Quarter: 2006Q3

REPORT INFORMATION
  Report Type: 
  Country: None (occurrence: None)
  Receive Date: 20060927
  Receipt Date: 20060918
  Transmission Date: 20061208
  Serious: Yes (Other)
  Sender: FDA-Public Use
  Company Number: US-JNJFOC-20060905602

PATIENT
  Sex: Male

DRUGS (3)
  1. REMICADE [Suspect]
     Indication: KAWASAKI'S DISEASE
  2. IMMUNE GLOBULIN INTRAVENOUS (HUMAN) [Suspect]
     Indication: KAWASAKI'S DISEASE
     Route: 042
  3. STEROIDS [Concomitant]

REACTIONS (1)
  - PYREXIA [None]
